FAERS Safety Report 18754028 (Version 1)
Quarter: 2021Q1

REPORT INFORMATION
  Report Type: Spontaneous
  Country: TW (occurrence: TW)
  Receive Date: 20210119
  Receipt Date: 20210119
  Transmission Date: 20210419
  Serious: Yes (Life-Threatening, Hospitalization, Other)
  Sender: FDA-Public Use
  Company Number: TW-ACCORD-215016

PATIENT
  Age: 58 Year
  Sex: Male

DRUGS (1)
  1. ESOMEPRAZOLE/ESOMEPRAZOLE MAGNESIUM/ESOMEPRAZOLE SODIUM [Suspect]
     Active Substance: ESOMEPRAZOLE
     Indication: DUODENAL ULCER HAEMORRHAGE
     Dosage: HIGH DOSE

REACTIONS (2)
  - Stevens-Johnson syndrome [Recovered/Resolved]
  - Type IV hypersensitivity reaction [Recovered/Resolved]
